FAERS Safety Report 17357438 (Version 1)
Quarter: 2020Q1

REPORT INFORMATION
  Report Type: Report from Study
  Country: None (occurrence: US)
  Receive Date: 20200131
  Receipt Date: 20200131
  Transmission Date: 20200409
  Serious: Yes (Life-Threatening, Other)
  Sender: FDA-Public Use
  Company Number: US-ABBVIE-19P-163-3157750-00

PATIENT
  Age: 63 Year
  Sex: Male
  Weight: 67 kg

DRUGS (4)
  1. OBINUTUZUMAB. [Concomitant]
     Active Substance: OBINUTUZUMAB
     Dosage: CYCLE 1, DAY 8
     Route: 042
     Dates: start: 20190729, end: 20190729
  2. OBINUTUZUMAB. [Concomitant]
     Active Substance: OBINUTUZUMAB
     Indication: CHRONIC LYMPHOCYTIC LEUKAEMIA
     Dosage: CYCLE 1, DAY 1
     Route: 042
     Dates: start: 20190722, end: 20190722
  3. IBRUTINIB [Suspect]
     Active Substance: IBRUTINIB
     Indication: CHRONIC LYMPHOCYTIC LEUKAEMIA
     Dosage: LAST DOES ADMINISTERED 30 JUL 2019
     Route: 048
     Dates: start: 20190722
  4. OBINUTUZUMAB. [Concomitant]
     Active Substance: OBINUTUZUMAB
     Dosage: CYCLE 1, DAY 2
     Route: 042
     Dates: start: 20190723, end: 20190723

REACTIONS (2)
  - Neutrophil count decreased [Not Recovered/Not Resolved]
  - Pancreatitis [Recovered/Resolved]

NARRATIVE: CASE EVENT DATE: 20190729
